FAERS Safety Report 8361811-3 (Version None)
Quarter: 2012Q2

REPORT INFORMATION
  Report Type: 
  Country: None (occurrence: None)
  Receive Date: 20120515
  Receipt Date: 20120507
  Transmission Date: 20120825
  Serious: Yes (Hospitalization)
  Sender: FDA-Public Use
  Company Number: JP-GLAXOSMITHKLINE-B0769995A

PATIENT
  Sex: Female
  Weight: 48 kg

DRUGS (15)
  1. PREDNISOLONE [Concomitant]
     Indication: IDIOPATHIC THROMBOCYTOPENIC PURPURA
     Dosage: 2.5MG PER DAY
     Route: 048
  2. TRIPAMIDE [Concomitant]
     Dosage: 30MG PER DAY
     Route: 048
  3. CHINESE MEDICINE [Concomitant]
     Dosage: 2.5G PER DAY
     Route: 048
  4. PROMACTA [Suspect]
     Indication: IDIOPATHIC THROMBOCYTOPENIC PURPURA
     Dosage: 12.5MG PER DAY
     Route: 048
     Dates: start: 20110519, end: 20111113
  5. PROMACTA [Suspect]
     Route: 048
     Dates: start: 20111114, end: 20120116
  6. MAGMITT [Concomitant]
     Indication: CONSTIPATION PROPHYLAXIS
     Dosage: 990MG PER DAY
     Route: 048
  7. MUCODYNE [Concomitant]
     Dosage: 1500MG PER DAY
     Route: 048
  8. ALDACTONE [Concomitant]
     Dosage: 25MG PER DAY
     Route: 048
  9. LASOPRAZOLE [Concomitant]
     Indication: IDIOPATHIC THROMBOCYTOPENIC PURPURA
     Dosage: 200MG PER DAY
     Route: 048
  10. MUCOSOLVAN [Concomitant]
     Dosage: 45MG PER DAY
     Route: 048
  11. LENDORMIN [Concomitant]
     Indication: INSOMNIA
     Dosage: .25MG PER DAY
     Route: 048
  12. METILDIGOXIN [Concomitant]
     Dosage: .05MG PER DAY
     Route: 048
  13. FUROSEMIDE [Concomitant]
     Dosage: 40MG PER DAY
     Route: 048
  14. LANSOPRAZOLE [Concomitant]
     Dosage: 30MG PER DAY
     Route: 048
  15. FERROUS CITRATE [Concomitant]
     Dosage: 50MG PER DAY
     Route: 048
     Dates: start: 20111105

REACTIONS (6)
  - ARTERIAL OCCLUSIVE DISEASE [None]
  - HAEMOGLOBIN DECREASED [None]
  - GASTROINTESTINAL HAEMORRHAGE [None]
  - HYPOAESTHESIA [None]
  - PERIPHERAL ARTERIAL OCCLUSIVE DISEASE [None]
  - FAECES DISCOLOURED [None]
